FAERS Safety Report 9383417 (Version 1)
Quarter: 2013Q3

REPORT INFORMATION
  Report Type: Report from Study
  Country: CA (occurrence: CA)
  Receive Date: 20130704
  Receipt Date: 20130704
  Transmission Date: 20140515
  Serious: Yes (Other)
  Sender: FDA-Public Use
  Company Number: CA-JNJFOC-20130617002

PATIENT
  Age: 72 Year
  Sex: Male
  Weight: 81.3 kg

DRUGS (6)
  1. REMICADE [Suspect]
     Indication: CROHN^S DISEASE
     Route: 042
     Dates: start: 20110517
  2. REMICADE [Suspect]
     Indication: CROHN^S DISEASE
     Route: 042
     Dates: start: 2013
  3. LANTUS [Concomitant]
     Route: 065
  4. PROTOPIC [Concomitant]
     Route: 065
  5. ASA [Concomitant]
     Route: 065
  6. HUMALOG [Concomitant]
     Route: 065

REACTIONS (1)
  - Stoma site haemorrhage [Recovered/Resolved]
